FAERS Safety Report 14917388 (Version 2)
Quarter: 2018Q2

REPORT INFORMATION
  Report Type: Spontaneous
  Country: US (occurrence: US)
  Receive Date: 20180521
  Receipt Date: 20180604
  Transmission Date: 20180711
  Serious: No
  Sender: FDA-Public Use
  Company Number: US-JNJFOC-20180506973

PATIENT
  Age: 83 Year
  Sex: Male
  Weight: 95.26 kg

DRUGS (10)
  1. L-TYROSINE [Concomitant]
     Active Substance: TYROSINE
     Indication: STRESS
     Dosage: ONCE OR TWICE A DAY
     Route: 048
  2. L-TYROSINE [Concomitant]
     Active Substance: TYROSINE
     Indication: MEMORY IMPAIRMENT
     Dosage: ONCE OR TWICE A DAY
     Route: 048
  3. FINASTERIDE. [Concomitant]
     Active Substance: FINASTERIDE
     Route: 048
  4. XARELTO [Suspect]
     Active Substance: RIVAROXABAN
     Indication: THROMBOSIS
     Route: 048
     Dates: start: 201804
  5. LOVASTATIN. [Concomitant]
     Active Substance: LOVASTATIN
     Route: 048
  6. L-TYROSINE [Concomitant]
     Active Substance: TYROSINE
     Indication: AFFECTIVE DISORDER
     Dosage: ONCE OR TWICE A DAY
     Route: 048
  7. PANTOPRAZOLE [Concomitant]
     Active Substance: PANTOPRAZOLE
     Route: 048
  8. FLOMAX [Concomitant]
     Active Substance: TAMSULOSIN HYDROCHLORIDE
     Route: 065
  9. MAGNESIUM [Concomitant]
     Active Substance: MAGNESIUM
     Route: 048
  10. TAMSULOSIN [Concomitant]
     Active Substance: TAMSULOSIN
     Route: 065

REACTIONS (2)
  - Ocular hyperaemia [Unknown]
  - Product lot number issue [Unknown]

NARRATIVE: CASE EVENT DATE: 20180504
